FAERS Safety Report 20719009 (Version 1)
Quarter: 2022Q2

REPORT INFORMATION
  Report Type: Spontaneous
  Country: US (occurrence: US)
  Receive Date: 20220418
  Receipt Date: 20220418
  Transmission Date: 20220721
  Serious: No
  Sender: FDA-Public Use
  Company Number: US-GLAXOSMITHKLINE-US2022AMR063889

PATIENT
  Age: 73 Year
  Sex: Female
  Weight: 54.422 kg

DRUGS (13)
  1. SUMATRIPTAN SUCCINATE [Suspect]
     Active Substance: SUMATRIPTAN SUCCINATE
     Indication: Migraine
     Dosage: UNK
  2. SUMATRIPTAN SUCCINATE [Suspect]
     Active Substance: SUMATRIPTAN SUCCINATE
     Indication: Headache
  3. SUMATRIPTAN SUCCINATE [Suspect]
     Active Substance: SUMATRIPTAN SUCCINATE
     Indication: Migraine
     Dosage: UNK
     Route: 048
  4. SUMATRIPTAN SUCCINATE [Suspect]
     Active Substance: SUMATRIPTAN SUCCINATE
     Indication: Headache
  5. NURTEC ODT [Suspect]
     Active Substance: RIMEGEPANT SULFATE
     Indication: Migraine
     Dosage: 75 MG, Z ONE TABLET ONCE OR TWICE PER WEEK
     Route: 048
  6. NURTEC ODT [Suspect]
     Active Substance: RIMEGEPANT SULFATE
     Indication: Headache
     Dosage: 75 MG, QOD
     Route: 048
     Dates: start: 20220331
  7. AIMOVIG [Suspect]
     Active Substance: ERENUMAB-AOOE
     Indication: Migraine
     Dosage: UNK
     Route: 042
  8. AIMOVIG [Suspect]
     Active Substance: ERENUMAB-AOOE
     Indication: Headache
  9. METOCLOPRAMIDE [Concomitant]
     Active Substance: METOCLOPRAMIDE
     Indication: Product used for unknown indication
     Dosage: UNK
     Route: 065
  10. NEURONTIN TABLETS (GABAPENTIN) [Concomitant]
     Indication: Product used for unknown indication
     Dosage: UNK
     Route: 065
  11. BOTOX [Concomitant]
     Active Substance: ONABOTULINUMTOXINA
     Indication: Migraine
     Dosage: UNK, PATIENT FELT THAT BOTOX WAS DOING THE JOB, SHE HAD BEEN TAKING IT SINCE IT CAME OUT
     Route: 042
  12. BOTOX [Concomitant]
     Active Substance: ONABOTULINUMTOXINA
     Indication: Headache
  13. COVID 19 VACCINE [Concomitant]
     Indication: COVID-19 prophylaxis
     Dosage: UNK, GOT THREE SHOTS AND FOURTH ONE SCHEDULED
     Route: 042

REACTIONS (3)
  - Dyspepsia [Unknown]
  - Therapeutic response delayed [Unknown]
  - Drug ineffective [Recovered/Resolved]
